FAERS Safety Report 9057889 (Version 2)
Quarter: 2013Q2

REPORT INFORMATION
  Report Type: Spontaneous
  Country: BR (occurrence: BR)
  Receive Date: 20130210
  Receipt Date: 20130503
  Transmission Date: 20140414
  Serious: Yes (Other)
  Sender: FDA-Public Use
  Company Number: BR-AMGEN-BRASP2013008093

PATIENT
  Age: 31 Year
  Sex: Female
  Weight: 60 kg

DRUGS (1)
  1. ENBREL [Suspect]
     Indication: RHEUMATOID ARTHRITIS
     Dosage: 50 MG, ONCE WEEKLY
     Route: 058
     Dates: start: 201204, end: 201210

REACTIONS (2)
  - Renal failure [Unknown]
  - Vesicoureteric reflux [Unknown]
